FAERS Safety Report 8988155 (Version 1)
Quarter: 2012Q4

REPORT INFORMATION
  Report Type: 
  Country: DE (occurrence: DE)
  Receive Date: 20121227
  Receipt Date: 20121227
  Transmission Date: 20130627
  Serious: Yes (Hospitalization)
  Sender: FDA-Public Use
  Company Number: DE-TEVA-107652ISR

PATIENT
  Age: 40 Year
  Sex: Female

DRUGS (3)
  1. COPAXONE [Suspect]
     Indication: MULTIPLE SCLEROSIS
     Dosage: 20 Milligram Daily;
     Route: 058
     Dates: start: 20040601
  2. POTASSIUM IODIDE [Concomitant]
     Route: 048
  3. ARIPIPRAZOLE [Concomitant]

REACTIONS (1)
  - Phyllodes tumour [Not Recovered/Not Resolved]
